FAERS Safety Report 9175663 (Version 1)
Quarter: 2013Q1

REPORT INFORMATION
  Report Type: Spontaneous
  Country: US (occurrence: US)
  Receive Date: 20130320
  Receipt Date: 20130320
  Transmission Date: 20140127
  Serious: Yes (Death, Hospitalization)
  Sender: FDA-Public Use
  Company Number: US-JNJFOC-2002127309US

PATIENT
  Age: 16 Year
  Sex: Female

DRUGS (3)
  1. MOTRIN [Suspect]
     Indication: COMPLETED SUICIDE
     Dosage: DAILY DOSE TEXT: 2 G, UNK
     Route: 048
     Dates: start: 20011201
  2. COLCHICINE [Suspect]
     Indication: COMPLETED SUICIDE
     Dosage: DAILY DOSE TEXT: 10 MG, UNK
     Route: 048
     Dates: start: 20011201
  3. PSEUDOEPHEDRINE [Suspect]
     Indication: COMPLETED SUICIDE
     Dosage: DAILY DOSE TEXT: 10 MG, UNK
     Route: 048
     Dates: start: 20011201

REACTIONS (8)
  - Suicide attempt [Fatal]
  - Intentional overdose [Fatal]
  - Hypotension [Fatal]
  - Acidosis [Fatal]
  - Gastrointestinal haemorrhage [Fatal]
  - Renal failure [Fatal]
  - Leukopenia [Fatal]
  - Cardiac arrest [Fatal]
